FAERS Safety Report 13980215 (Version 1)
Quarter: 2017Q3

REPORT INFORMATION
  Report Type: Spontaneous
  Country: JP (occurrence: JP)
  Receive Date: 20170917
  Receipt Date: 20170917
  Transmission Date: 20171128
  Serious: Yes (Other)
  Sender: FDA-Public Use
  Company Number: PHJP1900JP005540

PATIENT
  Age: 35 Year
  Sex: Male

DRUGS (46)
  1. SAWACILLIN [Suspect]
     Active Substance: AMOXICILLIN
     Indication: INFECTION PROPHYLAXIS
     Dosage: 750 MG, UNK
     Route: 048
  2. APRESOLINE HYDROCHLORIDE [Concomitant]
     Active Substance: HYDRALAZINE HYDROCHLORIDE
     Indication: BLOOD PRESSURE INCREASED
     Dosage: 150 MG, UNK
     Route: 048
     Dates: start: 19880923, end: 19880925
  3. PERSANTIN [Concomitant]
     Active Substance: DIPYRIDAMOLE
     Indication: BLOOD PRESSURE INCREASED
     Dosage: 40 MG, UNK
     Route: 048
     Dates: start: 19880926, end: 19880930
  4. ACDEAM [Concomitant]
     Indication: PRODUCT USED FOR UNKNOWN INDICATION
     Dosage: 2700 MG, UNK
     Route: 048
     Dates: start: 19890312, end: 19890319
  5. SANDIMMUN SOLUTION [Suspect]
     Active Substance: CYCLOSPORINE
     Dosage: 140 MG, UNK
     Route: 048
  6. SANDIMMUN SOLUTION [Suspect]
     Active Substance: CYCLOSPORINE
     Dosage: 90 MG, UNK
     Route: 048
  7. SANDIMMUN INJECTION [Suspect]
     Active Substance: CYCLOSPORINE
     Indication: KIDNEY TRANSPLANT REJECTION
     Dosage: 250 MG, UNK
     Route: 065
  8. MEDROL [Suspect]
     Active Substance: METHYLPREDNISOLONE
     Indication: KIDNEY TRANSPLANT REJECTION
     Dosage: 12 MG, UNK
     Route: 048
  9. IMURAN [Suspect]
     Active Substance: AZATHIOPRINE
     Indication: KIDNEY TRANSPLANT REJECTION
     Dosage: UNK
     Route: 048
  10. SOLU-MEDROL [Concomitant]
     Active Substance: METHYLPREDNISOLONE SODIUM SUCCINATE
     Dosage: 40 MG, UNK
     Route: 065
     Dates: start: 19880927, end: 19880929
  11. SOLU-MEDROL [Concomitant]
     Active Substance: METHYLPREDNISOLONE SODIUM SUCCINATE
     Dosage: 500 MG, UNK
     Route: 065
     Dates: start: 19881007, end: 19881007
  12. SOLU-MEDROL [Concomitant]
     Active Substance: METHYLPREDNISOLONE SODIUM SUCCINATE
     Dosage: 250 MG, UNK
     Route: 065
     Dates: start: 19881008, end: 19881009
  13. SANDIMMUN SOLUTION [Suspect]
     Active Substance: CYCLOSPORINE
     Dosage: 540 MG, UNK
     Route: 048
  14. SANDIMMUN SOLUTION [Suspect]
     Active Substance: CYCLOSPORINE
     Dosage: 160 MG, UNK
     Route: 048
  15. SANDIMMUN SOLUTION [Suspect]
     Active Substance: CYCLOSPORINE
     Dosage: 80 MG, UNK
     Route: 048
  16. SANDIMMUN SOLUTION [Suspect]
     Active Substance: CYCLOSPORINE
     Dosage: 100 MG, UNK
     Route: 048
  17. PANSPORIN [Suspect]
     Active Substance: CEFOTIAM HYDROCHLORIDE
     Indication: INFECTION PROPHYLAXIS
     Dosage: 2000 MG, UNK
     Route: 065
  18. CEFOBID [Suspect]
     Active Substance: CEFOPERAZONE
     Indication: INFECTION PROPHYLAXIS
     Dosage: UNK
     Route: 065
  19. PERDIPINE [Concomitant]
     Active Substance: NICARDIPINE HYDROCHLORIDE
     Indication: BLOOD PRESSURE INCREASED
     Dosage: 60 MG, UNK
     Route: 048
     Dates: start: 19880923, end: 19880925
  20. VENOGLOBULIN-I [Concomitant]
     Active Substance: HUMAN IMMUNOGLOBULIN G
     Dosage: UNK
     Dates: start: 19881028, end: 19881028
  21. CEFSPAN [Concomitant]
     Active Substance: CEFIXIME
     Indication: PRODUCT USED FOR UNKNOWN INDICATION
     Dosage: 200 MG, UNK
     Route: 048
     Dates: start: 19881208, end: 19890124
  22. CEFSPAN [Concomitant]
     Active Substance: CEFIXIME
     Dosage: 100 MG, UNK
     Route: 048
     Dates: start: 19890511, end: 19890604
  23. SANDIMMUN SOLUTION [Suspect]
     Active Substance: CYCLOSPORINE
     Dosage: 120 MG, UNK
     Route: 048
  24. PENTCILLIN [Suspect]
     Active Substance: PIPERACILLIN SODIUM
     Indication: INFECTION PROPHYLAXIS
     Dosage: 1000 MG, UNK
     Route: 065
  25. AZACTAM [Suspect]
     Active Substance: AZTREONAM
     Indication: INFECTION PROPHYLAXIS
     Dosage: UNK
     Route: 065
  26. SANDIMMUN SOLUTION [Suspect]
     Active Substance: CYCLOSPORINE
     Indication: PRODUCT USED FOR UNKNOWN INDICATION
     Dosage: 540 MG, UNK
     Route: 048
  27. SANDIMMUN SOLUTION [Suspect]
     Active Substance: CYCLOSPORINE
     Dosage: 350 MG, UNK
     Route: 048
  28. SANDIMMUN SOLUTION [Suspect]
     Active Substance: CYCLOSPORINE
     Dosage: 360 MG, UNK
     Route: 048
  29. SANDIMMUN SOLUTION [Suspect]
     Active Substance: CYCLOSPORINE
     Dosage: 100 MG, UNK
     Route: 048
  30. SANDIMMUN SOLUTION [Suspect]
     Active Substance: CYCLOSPORINE
     Dosage: 200 MG, UNK
     Route: 048
  31. PERDIPINE [Concomitant]
     Active Substance: NICARDIPINE HYDROCHLORIDE
     Dosage: UNK
     Route: 048
     Dates: start: 19881001
  32. FOIPAN [Concomitant]
     Active Substance: CAMOSTAT MESYLATE
     Indication: PRODUCT USED FOR UNKNOWN INDICATION
     Dosage: 6000 MG, UNK
     Route: 048
     Dates: start: 19880929, end: 19881001
  33. TARIVID [Concomitant]
     Active Substance: OFLOXACIN
     Indication: PRODUCT USED FOR UNKNOWN INDICATION
     Dosage: 300 MG, UNK
     Route: 048
     Dates: start: 19890125, end: 19890218
  34. SANDIMMUN SOLUTION [Suspect]
     Active Substance: CYCLOSPORINE
     Dosage: 500 MG, UNK
     Route: 048
  35. KEFRAL [Suspect]
     Active Substance: CEFACLOR
     Indication: INFECTION PROPHYLAXIS
     Dosage: 750 MG, UNK
     Route: 048
  36. SOLU-MEDROL [Concomitant]
     Active Substance: METHYLPREDNISOLONE SODIUM SUCCINATE
     Indication: KIDNEY TRANSPLANT REJECTION
     Dosage: 500 MG, UNK
     Route: 065
     Dates: start: 19880926, end: 19880926
  37. AHLBULIN [Concomitant]
     Indication: PRODUCT USED FOR UNKNOWN INDICATION
     Dosage: 1000 MG, UNK
     Dates: start: 19880926, end: 19881003
  38. VENOGLOBULIN-I [Concomitant]
     Active Substance: HUMAN IMMUNOGLOBULIN G
     Indication: PRODUCT USED FOR UNKNOWN INDICATION
     Dosage: UNK
     Route: 065
     Dates: start: 19881026, end: 19881027
  39. LEFTOSE [Concomitant]
     Active Substance: LYSOZYME HYDROCHLORIDE
     Dosage: 180 MG, UNK
     Route: 048
     Dates: start: 19890320, end: 19890413
  40. SANDIMMUN SOLUTION [Suspect]
     Active Substance: CYCLOSPORINE
     Dosage: 280 MG, UNK
     Route: 048
  41. SANDIMMUN SOLUTION [Suspect]
     Active Substance: CYCLOSPORINE
     Dosage: 180 MG, UNK
     Route: 048
  42. SANDIMMUN SOLUTION [Suspect]
     Active Substance: CYCLOSPORINE
     Dosage: 100 MG, UNK
     Route: 048
  43. GASTER [Concomitant]
     Active Substance: FAMOTIDINE
     Indication: PROPHYLAXIS AGAINST GASTROINTESTINAL ULCER
     Route: 048
     Dates: start: 19880923
  44. PANALDINE [Concomitant]
     Active Substance: TICLOPIDINE HYDROCHLORIDE
     Indication: PRODUCT USED FOR UNKNOWN INDICATION
     Route: 048
     Dates: start: 19881002, end: 19890206
  45. LEFTOSE [Concomitant]
     Active Substance: LYSOZYME HYDROCHLORIDE
     Indication: PRODUCT USED FOR UNKNOWN INDICATION
     Dosage: 180 MG, UNK
     Route: 048
     Dates: start: 19881208, end: 19890204
  46. TARIVID [Concomitant]
     Active Substance: OFLOXACIN
     Route: 048
     Dates: start: 19890228, end: 19890510

REACTIONS (4)
  - Pancreatitis acute [Recovered/Resolved]
  - Hyperlipidaemia [Recovering/Resolving]
  - Diabetes mellitus [Recovering/Resolving]
  - Hepatic function abnormal [Not Recovered/Not Resolved]
